FAERS Safety Report 11537179 (Version 1)
Quarter: 2015Q3

REPORT INFORMATION
  Report Type: Report from Study
  Country: US (occurrence: US)
  Receive Date: 20150922
  Receipt Date: 20150922
  Transmission Date: 20151125
  Serious: Yes (Hospitalization)
  Sender: FDA-Public Use
  Company Number: US-GILEAD-2015-0172728

PATIENT
  Age: 69 Year
  Sex: Male

DRUGS (1)
  1. RANOLAZINE [Suspect]
     Active Substance: RANOLAZINE
     Indication: PRODUCT USED FOR UNKNOWN INDICATION
     Dosage: 500 MG, BID
     Route: 048
     Dates: start: 201508

REACTIONS (11)
  - Insomnia [Unknown]
  - Nightmare [Unknown]
  - Irritability [Unknown]
  - Dry mouth [Unknown]
  - Chromaturia [Unknown]
  - Nervousness [Unknown]
  - Hallucination [Unknown]
  - Asthenia [Unknown]
  - Nausea [Unknown]
  - Night sweats [Unknown]
  - Depression [Unknown]

NARRATIVE: CASE EVENT DATE: 201508
